FAERS Safety Report 10031473 (Version 2)
Quarter: 2014Q1

REPORT INFORMATION
  Report Type: Report from Study
  Country: CN (occurrence: CN)
  Receive Date: 20140324
  Receipt Date: 20140327
  Transmission Date: 20141002
  Serious: Yes (Death, Hospitalization)
  Sender: FDA-Public Use
  Company Number: CN-ASTELLAS-2014US002716

PATIENT
  Age: 58 Year
  Sex: Male

DRUGS (1)
  1. ERLOTINIB TABLET [Suspect]
     Indication: NON-SMALL CELL LUNG CANCER
     Dosage: 150 MG, UID/QD
     Route: 048
     Dates: start: 20130409

REACTIONS (7)
  - Thrombosis [Fatal]
  - Angiopathy [Unknown]
  - Oedema [Unknown]
  - Eating disorder [Unknown]
  - Oedema peripheral [Unknown]
  - Back pain [Recovering/Resolving]
  - Asthenia [Unknown]
